FAERS Safety Report 6199917 (Version 15)
Quarter: 2013Q3

REPORT INFORMATION
  Report Type: Spontaneous
  Country: US (occurrence: US)
  Receive Date: 20061221
  Receipt Date: 20130715
  Transmission Date: 20140515
  Serious: Yes (Death, Hospitalization, Other)
  Sender: FDA-Public Use
  Company Number: PHEH2006US15190

PATIENT
  Sex: Female
  Weight: 98.41 kg

DRUGS (53)
  1. FLUCONAZOLE [Concomitant]
  2. MAGNESIUM SULPHATE [Concomitant]
  3. MORPHINE [Concomitant]
  4. ALBUTEROL [Concomitant]
  5. PROCHLORPERAZINE [Concomitant]
  6. VIOXX [Concomitant]
  7. PROVENTIL [Concomitant]
  8. VICODIN [Concomitant]
  9. CEFTRIAXONE [Concomitant]
  10. PRIMAXIN [Concomitant]
  11. CALCITONIN [Concomitant]
  12. MOXIFLOXACIN [Concomitant]
  13. ALLOPURINOL [Concomitant]
  14. NEUPOGEN [Concomitant]
  15. AREDIA [Suspect]
     Indication: HYPERCALCAEMIA
     Dosage: 90 MG, UNK
     Route: 042
  16. ZOMETA [Suspect]
     Indication: PROPHYLAXIS
     Dosage: 4 MG
     Route: 042
  17. CHEMOTHERAPEUTICS NOS [Concomitant]
     Indication: PLASMA CELL MYELOMA
  18. EFFEXOR [Concomitant]
     Indication: DEPRESSION
     Dosage: 150 MG, QD
  19. NEURONTIN [Concomitant]
  20. OXYCONTIN [Concomitant]
     Indication: PAIN
  21. FOLIC ACID [Concomitant]
     Dosage: 1 MG, QD
  22. GABAPENTIN [Concomitant]
     Indication: PAIN
     Dosage: 300 MG, TID
  23. ZANTAC [Concomitant]
     Indication: GASTROOESOPHAGEAL REFLUX DISEASE
     Dosage: 150 MG, TID
  24. ACYCLOVIR [Concomitant]
     Dosage: 200 MG, BID
  25. MAGNESIUM [Concomitant]
     Dosage: 500 MG, BID
  26. PYRIDOXINE [Concomitant]
     Dosage: 400 MG, QD
  27. VITAMIN E [Concomitant]
     Dosage: 1000 IU, QD
  28. THALIDOMIDE [Concomitant]
     Dosage: 200 MG, QHS
  29. MORPHINE SULFATE [Concomitant]
     Dosage: 60 MG, BID
  30. DOLASETRON [Concomitant]
  31. DEXAMETHASONE [Concomitant]
  32. COMPAZINE [Concomitant]
  33. BENADRYL [Concomitant]
  34. AZITHROMYCIN [Concomitant]
  35. PREDNISONE [Concomitant]
  36. CYTOXAN [Concomitant]
  37. PREMARIN [Concomitant]
  38. LASIX [Concomitant]
  39. PRILOSEC [Concomitant]
  40. LORAZEPAM [Concomitant]
  41. WELLBUTRIN [Concomitant]
  42. SALSALATE [Concomitant]
  43. ADVAIR [Concomitant]
  44. ZOLOFT (SERTRALINE HYDROCHLORIDE) [Concomitant]
  45. MOTRIN [Concomitant]
  46. XANAX [Concomitant]
  47. PROZAC [Concomitant]
  48. CLARITIN [Concomitant]
  49. PHENERGAN ^AVENTIS PHARMA^ [Concomitant]
  50. ZYRTEC [Concomitant]
  51. DOCUSATE [Concomitant]
  52. CYCLOBENZAPRINE [Concomitant]
  53. FILGRASTIM [Concomitant]

REACTIONS (115)
  - Death [Fatal]
  - Osteonecrosis of jaw [Unknown]
  - General physical health deterioration [Unknown]
  - Pain [Unknown]
  - Anxiety [Unknown]
  - Decreased interest [Unknown]
  - Gingivitis [Unknown]
  - Pain in jaw [Unknown]
  - Oral pain [Unknown]
  - Plasma cell myeloma [Unknown]
  - Malaise [Unknown]
  - Back pain [Unknown]
  - Pain in extremity [Unknown]
  - Arthralgia [Unknown]
  - Weight increased [Unknown]
  - Headache [Unknown]
  - Abdominal discomfort [Unknown]
  - Muscle tightness [Unknown]
  - Sleep disorder [Unknown]
  - Fatigue [Unknown]
  - Stress [Unknown]
  - Oral infection [Unknown]
  - Osteomyelitis [Unknown]
  - Stomatitis [Unknown]
  - Impaired healing [Unknown]
  - Denture wearer [Unknown]
  - Pneumonia [Unknown]
  - Dyspnoea [Unknown]
  - Cough [Unknown]
  - Nasopharyngitis [Unknown]
  - Chronic obstructive pulmonary disease [Unknown]
  - Spinal compression fracture [Unknown]
  - Wheezing [Unknown]
  - Anaemia [Unknown]
  - Hallucination [Unknown]
  - Constipation [Unknown]
  - Neuropathy peripheral [Unknown]
  - Dental caries [Unknown]
  - Road traffic accident [Unknown]
  - Atelectasis [Unknown]
  - Upper respiratory tract infection [Unknown]
  - Otitis media [Unknown]
  - Viral labyrinthitis [Unknown]
  - Sinus congestion [Unknown]
  - Rhinitis [Unknown]
  - Application site burn [Unknown]
  - Dyspepsia [Unknown]
  - Mucosal inflammation [Unknown]
  - Hypercalcaemia [Unknown]
  - Contusion [Unknown]
  - Hot flush [Unknown]
  - Cardiac murmur [Unknown]
  - Diarrhoea [Unknown]
  - Nausea [Unknown]
  - Tachycardia [Unknown]
  - Rash pruritic [Unknown]
  - Vomiting [Unknown]
  - Asthenia [Unknown]
  - Sinusitis [Unknown]
  - Pancytopenia [Unknown]
  - Proteinuria [Unknown]
  - Hypocalcaemia [Unknown]
  - Hypomagnesaemia [Unknown]
  - Obstructive airways disorder [Unknown]
  - Oedema [Unknown]
  - Dehydration [Unknown]
  - Renal cyst [Unknown]
  - Paratracheal lymphadenopathy [Unknown]
  - Pulmonary mass [Unknown]
  - Hyponatraemia [Unknown]
  - Hyperglycaemia [Unknown]
  - Intervertebral disc protrusion [Unknown]
  - Intervertebral disc degeneration [Unknown]
  - Spinal osteoarthritis [Unknown]
  - Acute myeloid leukaemia [Unknown]
  - Leukocytosis [Unknown]
  - Skin fissures [Unknown]
  - Plasma cell leukaemia [Unknown]
  - Hyperphosphataemia [Unknown]
  - Hepatosplenomegaly [Unknown]
  - Cardiomegaly [Unknown]
  - Pulmonary oedema [Unknown]
  - Osteoporosis [Unknown]
  - Pleural effusion [Unknown]
  - Bone lesion [Unknown]
  - Osteopenia [Unknown]
  - Osteolysis [Unknown]
  - Osteosclerosis [Unknown]
  - Rib fracture [Unknown]
  - Hypoxia [Unknown]
  - Avulsion fracture [Unknown]
  - Exposed bone in jaw [Unknown]
  - Primary sequestrum [Unknown]
  - Mental status changes [Unknown]
  - Confusional state [Unknown]
  - Fall [Unknown]
  - Hyperlipidaemia [Unknown]
  - Thrombocytopenia [Unknown]
  - Influenza like illness [Unknown]
  - Pulmonary hypertension [Unknown]
  - Left atrial dilatation [Unknown]
  - Right atrial dilatation [Unknown]
  - Tricuspid valve incompetence [Unknown]
  - Aortic stenosis [Unknown]
  - Conjunctivitis [Unknown]
  - Compression fracture [Unknown]
  - Bone pain [Unknown]
  - Gingival inflammation [Unknown]
  - Oedema peripheral [Unknown]
  - Gastrooesophageal reflux disease [Unknown]
  - Cystitis [Unknown]
  - Haematuria [Unknown]
  - Mitral valve incompetence [Unknown]
  - Acute respiratory distress syndrome [Unknown]
  - Pericardial effusion [Unknown]
